FAERS Safety Report 6036269-X (Version None)
Quarter: 2009Q1

REPORT INFORMATION
  Report Type: 
  Country: None (occurrence: None)
  Receive Date: 20090113
  Receipt Date: 20090106
  Transmission Date: 20090719
  Serious: Yes (Death, Other)
  Sender: FDA-Public Use
  Company Number: PHEH2007US08749

PATIENT
  Sex: Female

DRUGS (17)
  1. ZOMETA [Suspect]
     Indication: METASTASES TO BONE
     Dosage: UNK, UNK
     Dates: start: 20030218, end: 20050127
  2. AREDIA [Suspect]
     Dosage: UNK
     Dates: start: 20050101
  3. FEMARA [Concomitant]
     Dosage: 2.5 MG, UNK
  4. RADIOTHERAPY [Concomitant]
     Indication: PELVIC FRACTURE
     Dosage: UNK
     Dates: start: 20030501
  5. TAMOXIFEN CITRATE [Concomitant]
     Dosage: UNK
     Dates: start: 19990801
  6. PREVACID [Concomitant]
     Dosage: 30 MG, QD
  7. OXYCONTIN [Concomitant]
     Dosage: 30 MG, BID
  8. OXYCODONE HCL [Concomitant]
  9. FLONASE [Concomitant]
  10. CELEBREX [Concomitant]
     Dosage: 200 MG, QD
  11. REGLAN [Concomitant]
     Dosage: 10 MG, UNK
  12. DIGOXIN [Concomitant]
     Dosage: 0.25 MG, QD
  13. LEXAPRO [Concomitant]
     Dosage: 10 MG, UNK
  14. AROMASIN [Concomitant]
  15. FASLODEX [Concomitant]
  16. ROXICET [Concomitant]
     Dosage: UNK
     Dates: start: 20030901
  17. TYLENOL (CAPLET) [Concomitant]

REACTIONS (20)
  - ANXIETY [None]
  - ATRIAL FLUTTER [None]
  - BONE DISORDER [None]
  - BONE OPERATION [None]
  - DEATH [None]
  - DECREASED INTEREST [None]
  - DENTAL CARIES [None]
  - EMOTIONAL DISTRESS [None]
  - GENERAL PHYSICAL HEALTH DETERIORATION [None]
  - IMPAIRED HEALING [None]
  - INFECTION [None]
  - JAW OPERATION [None]
  - MALIGNANT NEOPLASM PROGRESSION [None]
  - OSTEOLYSIS [None]
  - OSTEONECROSIS [None]
  - PAIN [None]
  - PAIN IN JAW [None]
  - SUTURE INSERTION [None]
  - SUTURE REMOVAL [None]
  - TOOTH EXTRACTION [None]
